FAERS Safety Report 5746053-X (Version None)
Quarter: 2008Q2

REPORT INFORMATION
  Report Type: 
  Country: None (occurrence: None)
  Receive Date: 20080522
  Receipt Date: 20080516
  Transmission Date: 20081010
  Serious: Yes (Other)
  Sender: FDA-Public Use
  Company Number: BR-JNJFOC-20080504229

PATIENT
  Sex: Female
  Weight: 64 kg

DRUGS (6)
  1. HALDOL [Suspect]
     Route: 048
  2. HALDOL [Suspect]
     Indication: CONFUSIONAL STATE
     Route: 048
  3. NEOSINE [Concomitant]
     Indication: SLEEP DISORDER THERAPY
  4. NEOSINE [Concomitant]
     Indication: ANXIETY
  5. TOFRANIL [Concomitant]
  6. TOFRANIL [Concomitant]
     Indication: DEPRESSION

REACTIONS (7)
  - CRYING [None]
  - DRUG DEPENDENCE [None]
  - DRUG EXPOSURE DURING PREGNANCY [None]
  - DYSPNOEA [None]
  - HEART RATE INCREASED [None]
  - MORBID THOUGHTS [None]
  - SEDATION [None]
